FAERS Safety Report 9056249 (Version 1)
Quarter: 2013Q1

REPORT INFORMATION
  Report Type: Spontaneous
  Country: GB (occurrence: GB)
  Receive Date: 20130205
  Receipt Date: 20130205
  Transmission Date: 20140127
  Serious: Yes (Hospitalization)
  Sender: FDA-Public Use
  Company Number: GB-AMGEN-GBRSP2013006392

PATIENT
  Sex: 0

DRUGS (1)
  1. PEGFILGRASTIM [Suspect]
     Indication: NEUTROPENIA
     Dosage: UNK

REACTIONS (3)
  - Bacterial infection [Recovering/Resolving]
  - Abnormal behaviour [Unknown]
  - Sleep disorder [Unknown]
